FAERS Safety Report 22619179 (Version 12)
Quarter: 2024Q3

REPORT INFORMATION
  Report Type: Spontaneous
  Country: US (occurrence: US)
  Receive Date: 20230620
  Receipt Date: 20240920
  Transmission Date: 20241016
  Serious: Yes (Other)
  Sender: GLAXOSMITHKLINE
  Company Number: US-GLAXOSMITHKLINE-US2023083752

PATIENT

DRUGS (9)
  1. ZEJULA [Suspect]
     Active Substance: NIRAPARIB
     Indication: Ovarian cancer
     Dosage: 100 MG, QD
     Route: 048
     Dates: start: 20230504
  2. ZEJULA [Suspect]
     Active Substance: NIRAPARIB
     Dosage: 100 MG, QD
     Route: 048
     Dates: start: 202305
  3. ZEJULA [Suspect]
     Active Substance: NIRAPARIB
     Dosage: 100 MG, QD
     Route: 048
  4. ZEJULA [Suspect]
     Active Substance: NIRAPARIB
     Dosage: 100 MG, QD
     Route: 048
     Dates: end: 20231205
  5. ZEJULA [Suspect]
     Active Substance: NIRAPARIB
     Indication: Ovarian cancer
     Dosage: 100 MG, QD
  6. ZEJULA [Suspect]
     Active Substance: NIRAPARIB
     Dosage: 100 MG, QD
  7. ZEJULA [Suspect]
     Active Substance: NIRAPARIB
     Dosage: 100 MG, QD
  8. ZEJULA [Suspect]
     Active Substance: NIRAPARIB
     Dosage: 100 MG, QD
     Route: 048
  9. ZEJULA [Suspect]
     Active Substance: NIRAPARIB
     Dosage: 100 MG, QD

REACTIONS (19)
  - Metastases to lymph nodes [Unknown]
  - Red blood cell count decreased [Unknown]
  - Insomnia [Unknown]
  - Fatigue [Unknown]
  - Coronavirus infection [Unknown]
  - Rhinorrhoea [Unknown]
  - Multiple allergies [Unknown]
  - Increased upper airway secretion [Unknown]
  - Hot flush [Unknown]
  - Hyperhidrosis [Unknown]
  - Feeling hot [Unknown]
  - Carbohydrate antigen 125 increased [Recovered/Resolved]
  - Flatulence [Unknown]
  - Anaemia [Unknown]
  - White blood cell count decreased [Unknown]
  - Faeces hard [Unknown]
  - Product dose omission in error [Unknown]
  - Product dose omission issue [Unknown]
  - Incorrect dose administered [Unknown]
